FAERS Safety Report 21329131 (Version 1)
Quarter: 2022Q3

REPORT INFORMATION
  Report Type: Other
  Country: EG (occurrence: None)
  Receive Date: 20220913
  Receipt Date: 20220913
  Transmission Date: 20221027
  Serious: Yes (Death)
  Sender: FDA-Public Use
  Company Number: EG-ROCHE-3178652

PATIENT

DRUGS (1)
  1. TOCILIZUMAB [Suspect]
     Active Substance: TOCILIZUMAB
     Indication: COVID-19 pneumonia
     Dosage: INTRAVENOUSLY IN A DOSE OF 8 MG/KG BODYWEIGHT (UP TO A MAXIMUM OF 800 MG PER DOSE) DIVIDED INTO TWO
     Route: 042

REACTIONS (1)
  - Bacterial infection [Fatal]
